FAERS Safety Report 7933784 (Version 2)
Quarter: 2015Q3

REPORT INFORMATION
  Report Type: Report from Study
  Country: US (occurrence: US)
  Receive Date: 20110506
  Receipt Date: 20150807
  Transmission Date: 20151125
  Serious: Yes (Hospitalization, Other)
  Sender: FDA-Public Use
  Company Number: US-ROCHE-765777

PATIENT
  Age: 23 Year
  Sex: Female
  Weight: 55.5 kg

DRUGS (17)
  1. ATIVAN [Concomitant]
     Active Substance: LORAZEPAM
     Route: 065
  2. LYRICA [Concomitant]
     Active Substance: PREGABALIN
     Route: 065
  3. CELEXA (UNITED STATES) [Concomitant]
     Route: 065
  4. BEVACIZUMAB [Suspect]
     Active Substance: BEVACIZUMAB
     Dosage: 2 DOSES OF BEVACIZUMAB
     Route: 042
     Dates: start: 20100603, end: 20100617
  5. PRILOSEC [Concomitant]
     Active Substance: OMEPRAZOLE MAGNESIUM
     Dosage: DELAYED RELEASE
     Route: 065
  6. BACTRIM DS [Concomitant]
     Active Substance: SULFAMETHOXAZOLE\TRIMETHOPRIM
     Dosage: 800-160 MG
     Route: 065
  7. TEMOZOLOMIDE. [Suspect]
     Active Substance: TEMOZOLOMIDE
     Dosage: X 5
     Route: 065
     Dates: start: 20110224
  8. VICODIN [Concomitant]
     Active Substance: ACETAMINOPHEN\HYDROCODONE BITARTRATE
     Dosage: 5-500 MG
     Route: 065
  9. TEMOZOLOMIDE. [Suspect]
     Active Substance: TEMOZOLOMIDE
     Indication: GLIOBLASTOMA MULTIFORME
     Route: 065
     Dates: start: 20100729
  10. ZOFRAN [Concomitant]
     Active Substance: ONDANSETRON HYDROCHLORIDE
     Route: 065
  11. KEPPRA [Concomitant]
     Active Substance: LEVETIRACETAM
     Route: 065
  12. IRINOTECAN [Suspect]
     Active Substance: IRINOTECAN
     Indication: GLIOBLASTOMA MULTIFORME
     Route: 065
     Dates: start: 20100729
  13. IRINOTECAN [Suspect]
     Active Substance: IRINOTECAN
     Route: 065
     Dates: start: 20110224
  14. BEVACIZUMAB [Suspect]
     Active Substance: BEVACIZUMAB
     Indication: GLIOBLASTOMA MULTIFORME
     Route: 042
  15. BEVACIZUMAB [Suspect]
     Active Substance: BEVACIZUMAB
     Dosage: MAINTENANCE COURSE.
     Route: 042
  16. BEVACIZUMAB [Suspect]
     Active Substance: BEVACIZUMAB
     Route: 042
  17. MELATONIN [Concomitant]
     Active Substance: MELATONIN
     Route: 065

REACTIONS (4)
  - Thrombosis [Unknown]
  - Herpes simplex [Recovered/Resolved]
  - Paronychia [Unknown]
  - Localised infection [Unknown]

NARRATIVE: CASE EVENT DATE: 20110303
